FAERS Safety Report 17684000 (Version 2)
Quarter: 2020Q3

REPORT INFORMATION
  Report Type: Spontaneous
  Country: CH (occurrence: CH)
  Receive Date: 20200420
  Receipt Date: 20200803
  Transmission Date: 20201102
  Serious: Yes (Other)
  Sender: FDA-Public Use
  Company Number: CH-GLAXOSMITHKLINE-CH2020EME047995

PATIENT
  Sex: Female
  Weight: 19 kg

DRUGS (1)
  1. AXOTIDE [Suspect]
     Active Substance: FLUTICASONE PROPIONATE
     Indication: ASTHMA
     Dosage: UNK UNK, BID,125 DOSES
     Route: 055
     Dates: start: 2017, end: 201912

REACTIONS (3)
  - Adrenal suppression [Not Recovered/Not Resolved]
  - Cortisol decreased [Unknown]
  - Growth retardation [Not Recovered/Not Resolved]

NARRATIVE: CASE EVENT DATE: 2017
